FAERS Safety Report 23706244 (Version 1)
Quarter: 2024Q2

REPORT INFORMATION
  Report Type: Spontaneous
  Country: ES (occurrence: ES)
  Receive Date: 20240404
  Receipt Date: 20240404
  Transmission Date: 20240715
  Serious: Yes (Hospitalization, Other)
  Sender: FDA-Public Use
  Company Number: ES-Eisai-EC-2024-161980

PATIENT
  Age: 8 Year
  Sex: Male
  Weight: 22 kg

DRUGS (5)
  1. MYCOPHENOLATE MOFETIL [Suspect]
     Active Substance: MYCOPHENOLATE MOFETIL
     Indication: Heart transplant
     Dosage: 2 ML (400 MG)/8 HOURS.
     Route: 065
  2. TACROLIMUS [Suspect]
     Active Substance: TACROLIMUS
     Indication: Heart transplant
     Dosage: DOSE INCREASED.
     Route: 065
     Dates: start: 2024
  3. TACROLIMUS [Suspect]
     Active Substance: TACROLIMUS
     Dosage: DOSE AND FREQUENCY UNKNOWN.
     Route: 065
     Dates: end: 2024
  4. INOVELON [Suspect]
     Active Substance: RUFINAMIDE
     Indication: Epilepsy
     Route: 065
     Dates: start: 20240116, end: 202403
  5. LAMOTRIGINE [Concomitant]
     Active Substance: LAMOTRIGINE
     Indication: Product used for unknown indication

REACTIONS (7)
  - Malaise [Unknown]
  - Cardiac failure [Unknown]
  - Immunosuppressant drug level decreased [Unknown]
  - Vomiting [Recovering/Resolving]
  - Heart transplant rejection [Recovering/Resolving]
  - Nausea [Recovering/Resolving]
  - Drug interaction [Unknown]

NARRATIVE: CASE EVENT DATE: 20240129
